FAERS Safety Report 16316526 (Version 1)
Quarter: 2019Q2

REPORT INFORMATION
  Report Type: Spontaneous
  Country: IL (occurrence: IL)
  Receive Date: 20190515
  Receipt Date: 20190515
  Transmission Date: 20190711
  Serious: Yes (Hospitalization, Other)
  Sender: FDA-Public Use
  Company Number: IL-009507513-1905ISR006127

PATIENT
  Age: 70 Year
  Sex: Male

DRUGS (1)
  1. KEYTRUDA [Suspect]
     Active Substance: PEMBROLIZUMAB
     Indication: NON-SMALL CELL LUNG CANCER
     Dosage: UNK
     Dates: start: 201812, end: 201905

REACTIONS (4)
  - Hypophysitis [Unknown]
  - Malignant neoplasm progression [Not Recovered/Not Resolved]
  - Asthenia [Unknown]
  - Troponin [Unknown]

NARRATIVE: CASE EVENT DATE: 201905
